FAERS Safety Report 16057134 (Version 1)
Quarter: 2019Q2

REPORT INFORMATION
  Report Type: Spontaneous
  Country: US (occurrence: US)
  Receive Date: 20190311
  Receipt Date: 20190311
  Transmission Date: 20190711
  Serious: Yes (Disabling)
  Sender: FDA-Public Use
  Company Number: None

PATIENT
  Age: 65 Year
  Sex: Female
  Weight: 79.2 kg

DRUGS (7)
  1. ATORVASTATIN [Concomitant]
     Active Substance: ATORVASTATIN
  2. METOPROLOL ER SUCCINATE [Concomitant]
     Active Substance: METOPROLOL SUCCINATE
  3. GNC TRIPLE STRENGTH FISH OIL MINI [Concomitant]
  4. KIRKLAND EXTRA STRENGTH  D3 [Concomitant]
  5. METOPROLOL SUCC ER 25 MG TAB, UU, 25 MG [Suspect]
     Active Substance: METOPROLOL SUCCINATE
     Indication: ARRHYTHMIA
     Dosage: ?          QUANTITY:90 TABLET(S);?
     Route: 048
     Dates: start: 20190115, end: 20190213
  6. CENTRUM SILVER [Concomitant]
     Active Substance: MINERALS\VITAMINS
  7. KIRKLAND QUICK DISSOLVE B12 5000 MCG [Concomitant]

REACTIONS (3)
  - Product substitution issue [None]
  - Heart rate increased [None]
  - Supraventricular tachycardia [None]

NARRATIVE: CASE EVENT DATE: 20190115
